FAERS Safety Report 6671102-4 (Version None)
Quarter: 2010Q2

REPORT INFORMATION
  Report Type: 
  Country: None (occurrence: None)
  Receive Date: 20100407
  Receipt Date: 20100326
  Transmission Date: 20101027
  Serious: Yes (Other)
  Sender: FDA-Public Use
  Company Number: PHHY2010PH19663

PATIENT
  Sex: Male

DRUGS (3)
  1. GLEEVEC [Suspect]
     Indication: CHRONIC MYELOID LEUKAEMIA
     Dosage: 400 MG, QD
  2. GLEEVEC [Suspect]
     Dosage: 600 MG, QD
  3. GLEEVEC [Suspect]
     Dosage: 800 MG, QD

REACTIONS (4)
  - ANAEMIA [None]
  - BLAST CELL COUNT INCREASED [None]
  - CHRONIC MYELOID LEUKAEMIA [None]
  - PANCYTOPENIA [None]
